FAERS Safety Report 6206800-X (Version None)
Quarter: 2009Q2

REPORT INFORMATION
  Report Type: 
  Country: None (occurrence: None)
  Receive Date: 20090528
  Receipt Date: 20090527
  Transmission Date: 20091009
  Serious: No
  Sender: FDA-Public Use
  Company Number: US-JNJFOC-20090200805

PATIENT
  Sex: Male
  Weight: 104.33 kg

DRUGS (8)
  1. DURAGESIC-100 [Suspect]
     Route: 062
  2. DURAGESIC-100 [Suspect]
     Indication: PAIN
     Dosage: TWO 100MCG/HR PATCHES
     Route: 062
  3. LORTAB [Concomitant]
     Indication: PAIN
     Dosage: DOSE:10/500. EVERY 4 HOURS AS NECESSARY.
     Route: 048
  4. OXYCONTIN [Concomitant]
     Indication: PAIN
     Route: 048
  5. SOMA [Concomitant]
     Indication: PAIN
     Route: 048
  6. XANAX [Concomitant]
     Route: 048
  7. THEOPHYLLINE [Concomitant]
     Indication: ASTHMA
     Route: 048
  8. PERCOCET [Concomitant]
     Indication: PAIN
     Route: 048

REACTIONS (4)
  - DRUG ADMINISTERED AT INAPPROPRIATE SITE [None]
  - DRUG EFFECT DECREASED [None]
  - PRODUCT QUALITY ISSUE [None]
  - WRONG TECHNIQUE IN DRUG USAGE PROCESS [None]
